FAERS Safety Report 11840216 (Version 5)
Quarter: 2016Q2

REPORT INFORMATION
  Report Type: Spontaneous
  Country: BE (occurrence: BE)
  Receive Date: 20151216
  Receipt Date: 20160408
  Transmission Date: 20160815
  Serious: Yes (Life-Threatening)
  Sender: FDA-Public Use
  Company Number: BE-NOVOPROD-473147

PATIENT
  Age: 55 Year
  Sex: Female
  Weight: 64 kg

DRUGS (4)
  1. GLUCAGEN HYPOKIT [Suspect]
     Active Substance: GLUCAGON HYDROCHLORIDE
     Indication: HYPOGLYCAEMIA
     Dosage: UNK
     Route: 065
     Dates: start: 20151204
  2. LEVEMIR [Concomitant]
     Active Substance: INSULIN DETEMIR
     Dosage: BID
     Route: 065
     Dates: start: 20090120
  3. NOVORAPID [Concomitant]
     Active Substance: INSULIN ASPART
     Dosage: BID
     Route: 065
     Dates: start: 2004
  4. LANTUS [Concomitant]
     Active Substance: INSULIN GLARGINE
     Route: 065

REACTIONS (2)
  - Hypoglycaemic coma [Recovered/Resolved with Sequelae]
  - Product quality issue [Unknown]

NARRATIVE: CASE EVENT DATE: 20151204
